FAERS Safety Report 15691164 (Version 2)
Quarter: 2020Q2

REPORT INFORMATION
  Report Type: Report from Study
  Country: CO (occurrence: CO)
  Receive Date: 20181205
  Receipt Date: 20200424
  Transmission Date: 20200713
  Serious: Yes (Hospitalization, Other)
  Sender: FDA-Public Use
  Company Number: CO-ACTELION-A-NJ2018-183114

PATIENT
  Age: 50 Year
  Sex: Female

DRUGS (7)
  1. VENTAVIS [Suspect]
     Active Substance: ILOPROST
     Indication: PULMONARY ARTERIAL HYPERTENSION
     Dosage: 5 MCG, Q4HRS
     Route: 055
     Dates: start: 20090901
  2. MACITENTAN [Concomitant]
     Active Substance: MACITENTAN
  3. OXYGEN. [Concomitant]
     Active Substance: OXYGEN
  4. SILDENAFIL. [Concomitant]
     Active Substance: SILDENAFIL
  5. METOPROLOL. [Concomitant]
     Active Substance: METOPROLOL
  6. SPIRONOLACTONE. [Concomitant]
     Active Substance: SPIRONOLACTONE
  7. WARFARIN [Concomitant]
     Active Substance: WARFARIN
     Indication: PULMONARY HYPERTENSION

REACTIONS (2)
  - Catheterisation cardiac [Recovered/Resolved]
  - Hypotension [Recovered/Resolved]

NARRATIVE: CASE EVENT DATE: 201805
